FAERS Safety Report 17302006 (Version 2)
Quarter: 2020Q1

REPORT INFORMATION
  Report Type: Report from Study
  Country: GB (occurrence: GB)
  Receive Date: 20200122
  Receipt Date: 20200320
  Transmission Date: 20200409
  Serious: Yes (Other)
  Sender: FDA-Public Use
  Company Number: GB-CELGENEUS-GBR-20200105252

PATIENT
  Age: 57 Year
  Sex: Male
  Weight: 88 kg

DRUGS (5)
  1. DOUBLEBASE [Concomitant]
     Active Substance: ISOPROPYL MYRISTATE\PARAFFIN
     Indication: PSORIASIS
     Dosage: 1 APPLICATION X PRN
     Route: 061
     Dates: end: 20191120
  2. CETRABEN [Concomitant]
     Active Substance: PARAFFIN
     Indication: PSORIASIS
     Dosage: 1 APPLICATION X PRN
     Route: 061
  3. CITALOPRAM [Concomitant]
     Active Substance: CITALOPRAM HYDROBROMIDE
     Indication: ANXIETY
     Dosage: 20 MG X 1 X 1 DAYS
     Route: 048
     Dates: start: 2004
  4. CC-10004 [Suspect]
     Active Substance: APREMILAST
     Indication: PSORIASIS
     Dosage: 30 MG X 2 X 1 DAYS
     Route: 048
     Dates: start: 20191114, end: 20191211
  5. OMEPRAZOLE. [Concomitant]
     Active Substance: OMEPRAZOLE
     Indication: GASTROOESOPHAGEAL REFLUX DISEASE
     Dosage: 20 MG X PRN
     Route: 048
     Dates: start: 201810

REACTIONS (1)
  - Iridocyclitis [Recovered/Resolved]

NARRATIVE: CASE EVENT DATE: 20191212
